FAERS Safety Report 18353075 (Version 1)
Quarter: 2020Q4

REPORT INFORMATION
  Report Type: Report from Study
  Country: US (occurrence: US)
  Receive Date: 20201006
  Receipt Date: 20201006
  Transmission Date: 20210114
  Serious: Yes (Death)
  Sender: FDA-Public Use
  Company Number: US-ASTRAZENECA-2020SF27907

PATIENT
  Age: 61 Year
  Sex: Female

DRUGS (14)
  1. KLOR-CON [Concomitant]
     Active Substance: POTASSIUM CHLORIDE
  2. ONDANSETRON [Concomitant]
     Active Substance: ONDANSETRON
  3. ACYCLOVIR. [Concomitant]
     Active Substance: ACYCLOVIR
  4. JUNEL FE 1/20 [Concomitant]
     Active Substance: ETHINYL ESTRADIOL\NORETHINDRONE ACETATE
  5. LORAZEPAM. [Concomitant]
     Active Substance: LORAZEPAM
  6. LYNPARZA [Suspect]
     Active Substance: OLAPARIB
     Indication: OVARIAN CANCER
     Route: 048
  7. FLUOXETINE [Concomitant]
     Active Substance: FLUOXETINE HYDROCHLORIDE
  8. LEVOFLOXACIN. [Concomitant]
     Active Substance: LEVOFLOXACIN
  9. AMOXICILLIN. [Concomitant]
     Active Substance: AMOXICILLIN
  10. MICROGESTIN FE [Concomitant]
     Active Substance: ETHINYL ESTRADIOL\FERROUS FUMARATE\NORETHINDRONE ACETATE
  11. POSACONAZOLE [Concomitant]
     Active Substance: POSACONAZOLE
  12. FOLIC ACID. [Concomitant]
     Active Substance: FOLIC ACID
  13. GABAPENTIN. [Concomitant]
     Active Substance: GABAPENTIN
  14. MORPHINE [Concomitant]
     Active Substance: MORPHINE

REACTIONS (1)
  - Death [Fatal]

NARRATIVE: CASE EVENT DATE: 20200929
